FAERS Safety Report 6289188-8 (Version None)
Quarter: 2009Q3

REPORT INFORMATION
  Report Type: 
  Country: None (occurrence: None)
  Receive Date: 20090728
  Receipt Date: 20090717
  Transmission Date: 20100115
  Serious: Yes (Other)
  Sender: FDA-Public Use
  Company Number: 2009AP002938

PATIENT
  Age: 23 Year
  Sex: Female

DRUGS (3)
  1. SERTRALINE HYDROCHLORIDE [Suspect]
     Indication: DEPRESSION
     Dosage: 50 MG; PO
     Route: 048
     Dates: start: 20090521, end: 20090616
  2. SERTRALINE HYDROCHLORIDE [Suspect]
     Indication: OBSESSIVE-COMPULSIVE DISORDER
     Dosage: 50 MG; PO
     Route: 048
     Dates: start: 20090521, end: 20090616
  3. PARACETAMOL (PARACETAMOL) [Concomitant]

REACTIONS (3)
  - HYPERHIDROSIS [None]
  - SENSORY DISTURBANCE [None]
  - TACHYCARDIA [None]
